FAERS Safety Report 9448345 (Version 7)
Quarter: 2013Q4

REPORT INFORMATION
  Report Type: Spontaneous
  Country: FR (occurrence: FR)
  Receive Date: 20130808
  Receipt Date: 20131114
  Transmission Date: 20140711
  Serious: Yes (Hospitalization)
  Sender: FDA-Public Use
  Company Number: FR-PFIZER INC-2013229331

PATIENT
  Age: 73 Year
  Sex: Male

DRUGS (18)
  1. BRICANYL [Suspect]
     Dosage: UNK
     Route: 065
     Dates: start: 20130626
  2. ATROVENT [Suspect]
     Dosage: UNK
     Route: 065
     Dates: start: 20130626
  3. OFLOXACIN [Concomitant]
     Indication: STAPHYLOCOCCAL INFECTION
     Dosage: UNK
     Dates: start: 20130628, end: 20130704
  4. CORDARONE [Suspect]
     Indication: ATRIAL FIBRILLATION
     Dosage: 200 MG, WEEKLY
     Route: 048
  5. CORDARONE [Suspect]
     Dosage: UNK
  6. LEVOFLOXACIN [Suspect]
     Indication: INFECTION
     Dosage: UNK
     Route: 048
     Dates: start: 20130704
  7. EUPANTOL [Suspect]
     Indication: GASTRIC ULCER
     Dosage: 40 MG, 1X/DAY, (IN THE EVENING)
     Route: 048
  8. LASILIX [Suspect]
     Indication: HYPERTENSION
     Dosage: 40 MG DAILY
     Route: 048
  9. LASILIX [Suspect]
     Dosage: UNKNOWN
     Route: 048
     Dates: start: 20130626
  10. RIFADINE [Suspect]
     Indication: STAPHYLOCOCCAL INFECTION
     Dosage: UNK
     Route: 048
     Dates: start: 20130628, end: 20130708
  11. RIFADINE [Suspect]
     Indication: STAPHYLOCOCCAL INFECTION
  12. GENTAMICIN ^PANPHARMA^ [Suspect]
     Indication: INFECTION
     Dosage: 240 MG, 1X/DAY
     Route: 058
     Dates: start: 20130704, end: 20130708
  13. LEVOTHYROX [Suspect]
     Indication: HYPOTHYROIDISM
     Dosage: 87.5 UG, 1X/DAY
     Route: 048
  14. LEVOTHYROX [Suspect]
     Dosage: UNK, QD
     Route: 048
     Dates: start: 20130829, end: 20130901
  15. PREVISCAN [Suspect]
     Indication: PROPHYLAXIS
     Dosage: 0.75 DOSAGE FORM OF 20 MG, DAILY
     Route: 048
     Dates: end: 20130708
  16. CARDENSIEL [Suspect]
     Indication: HYPERTENSION
     Dosage: 5 MG, 1X/DAY
     Route: 048
  17. ZYLORIC [Suspect]
     Indication: HYPERURICAEMIA
     Dosage: 200 MG, 1X/DAY
     Route: 048
  18. SERETIDE DISKUS [Suspect]
     Indication: CHRONIC OBSTRUCTIVE PULMONARY DISEASE
     Dosage: 500 MG, 2X/DAY
     Route: 048

REACTIONS (4)
  - Hepatitis [Recovered/Resolved]
  - Transaminases increased [Recovered/Resolved]
  - Chronic obstructive pulmonary disease [Unknown]
  - Staphylococcal bacteraemia [Unknown]
